FAERS Safety Report 7233539-4 (Version None)
Quarter: 2011Q1

REPORT INFORMATION
  Report Type: 
  Country: None (occurrence: None)
  Receive Date: 20110107
  Receipt Date: 20100330
  Transmission Date: 20110831
  Serious: Yes (Other)
  Sender: FDA-Public Use
  Company Number: DSA_42886_2010

PATIENT
  Age: 72 Year
  Sex: Male

DRUGS (8)
  1. METOPROLOL [Suspect]
     Indication: PRODUCT USED FOR UNKNOWN INDICATION
     Dosage: (50 MG BID ORAL)
     Route: 048
  2. ZANAFLEX [Concomitant]
  3. COUMADIN [Suspect]
     Indication: PRODUCT USED FOR UNKNOWN INDICATION
     Dosage: (DF ORAL)
     Route: 048
  4. CARDIZEM [Suspect]
     Indication: PRODUCT USED FOR UNKNOWN INDICATION
     Dosage: (180 MG QD ORAL)
     Route: 048
  5. RILUTEK [Suspect]
     Indication: AMYOTROPHIC LATERAL SCLEROSIS
     Dosage: (50 MG 1X/12 HOURS ORAL)
     Route: 048
     Dates: start: 20091001, end: 20091101
  6. RILUTEK [Suspect]
     Indication: AMYOTROPHIC LATERAL SCLEROSIS
     Dosage: (50 MG 1X/12 HOURS ORAL)
     Route: 048
     Dates: start: 20100201
  7. RILUTEK [Suspect]
     Indication: AMYOTROPHIC LATERAL SCLEROSIS
     Dosage: (50 MG 1X/12 HOURS ORAL)
     Route: 048
     Dates: start: 20091201, end: 20100101
  8. DIGOXIN [Suspect]
     Indication: PRODUCT USED FOR UNKNOWN INDICATION
     Dosage: (2.5 MG QD ORAL)
     Route: 048

REACTIONS (2)
  - HEART RATE DECREASED [None]
  - BLOOD PRESSURE DECREASED [None]
